FAERS Safety Report 15720232 (Version 8)
Quarter: 2021Q1

REPORT INFORMATION
  Report Type: Report from Study
  Country: JP (occurrence: JP)
  Receive Date: 20181213
  Receipt Date: 20210127
  Transmission Date: 20210419
  Serious: Yes (Other)
  Sender: FDA-Public Use
  Company Number: PHJP2018JP020590

PATIENT
  Age: 35 Year
  Sex: Female
  Weight: 53 kg

DRUGS (7)
  1. COSENTYX [Suspect]
     Active Substance: SECUKINUMAB
     Indication: PSORIASIS
     Dosage: 300 MG, QW
     Route: 058
     Dates: start: 20180606, end: 20180704
  2. DOVOBET [Concomitant]
     Active Substance: BETAMETHASONE\CALCIPOTRIENE
     Indication: PSORIASIS
     Dosage: UNK, AS NEEDED
     Route: 061
     Dates: start: 201707, end: 20180912
  3. HIRUDOID [Concomitant]
     Active Substance: GLYCOSAMINOGLYCANS
     Indication: PSORIASIS
     Dosage: UNK
     Route: 061
     Dates: start: 20150627
  4. COSENTYX [Suspect]
     Active Substance: SECUKINUMAB
     Dosage: 300 MG, Q4W
     Route: 058
     Dates: start: 20180801, end: 20181024
  5. COSENTYX [Suspect]
     Active Substance: SECUKINUMAB
     Dosage: 300 MG, Q4W
     Route: 058
     Dates: start: 20181205
  6. RYO?KEI?ZYUTU?KAN?TO [Concomitant]
     Indication: PANIC DISORDER
     Dosage: 7.5 G, UNK
     Route: 048
  7. URSODEOXYCHOLIC ACID [Concomitant]
     Active Substance: URSODIOL
     Indication: PROPHYLAXIS
     Dosage: 150 MG
     Route: 048
     Dates: start: 20190911, end: 20191010

REACTIONS (8)
  - Fall [Unknown]
  - Alcoholic liver disease [Recovered/Resolved]
  - Liver function test abnormal [Recovered/Resolved]
  - Aspartate aminotransferase increased [Recovered/Resolved]
  - Ankle fracture [Recovered/Resolved]
  - Fatigue [Unknown]
  - Alanine aminotransferase increased [Recovered/Resolved]
  - Decreased appetite [Unknown]

NARRATIVE: CASE EVENT DATE: 20180912
